FAERS Safety Report 5454582-1 (Version None)
Quarter: 2007Q3

REPORT INFORMATION
  Report Type: 
  Country: None (occurrence: None)
  Receive Date: 20070917
  Receipt Date: 20060927
  Transmission Date: 20080115
  Serious: No
  Sender: FDA-Public Use
  Company Number: US-ASTRAZENECA-2006UW18848

PATIENT
  Age: 48 Year
  Sex: Female

DRUGS (7)
  1. SEROQUEL [Suspect]
     Indication: BIPOLAR DISORDER
     Route: 048
     Dates: start: 20000101
  2. HERBAL PILLS [Concomitant]
  3. DIABETES PILL [Concomitant]
  4. TOPAMAX [Concomitant]
  5. ZOCOR [Concomitant]
  6. ZOLOFT [Concomitant]
  7. TRAZODONE HCL [Concomitant]

REACTIONS (2)
  - DRUG SCREEN POSITIVE [None]
  - SOMNOLENCE [None]
